FAERS Safety Report 25450142 (Version 1)
Quarter: 2025Q2

REPORT INFORMATION
  Report Type: Spontaneous
  Country: GB (occurrence: GB)
  Receive Date: 20250618
  Receipt Date: 20250618
  Transmission Date: 20250716
  Serious: Yes (Other)
  Sender: AUROBINDO
  Company Number: GB-AUROBINDO-AUR-APL-2025-020446

PATIENT
  Age: 69 Year
  Sex: Female

DRUGS (3)
  1. VORICONAZOLE [Suspect]
     Active Substance: VORICONAZOLE
     Indication: Cerebral aspergillosis
     Route: 065
  2. POSACONAZOLE [Concomitant]
     Active Substance: POSACONAZOLE
     Indication: Cerebral aspergillosis
     Route: 065
  3. ISAVUCONAZOLE [Concomitant]
     Active Substance: ISAVUCONAZOLE
     Indication: Cerebral aspergillosis
     Route: 065

REACTIONS (1)
  - Gastrointestinal toxicity [Unknown]
